FAERS Safety Report 5847059-2 (Version None)
Quarter: 2008Q3

REPORT INFORMATION
  Report Type: 
  Country: None (occurrence: None)
  Receive Date: 20080815
  Receipt Date: 20080804
  Transmission Date: 20090109
  Serious: Yes (Other)
  Sender: FDA-Public Use
  Company Number: GB-PFIZER INC-2008066152

PATIENT
  Age: 42 Year
  Sex: Female
  Weight: 49 kg

DRUGS (2)
  1. CHANTIX [Suspect]
     Indication: SMOKING CESSATION THERAPY
     Route: 048
     Dates: start: 20080626, end: 20080711
  2. PROGYNOVA [Concomitant]
     Indication: HORMONE REPLACEMENT THERAPY
     Route: 048

REACTIONS (10)
  - ARTHRALGIA [None]
  - DIZZINESS [None]
  - DYSPEPSIA [None]
  - EPISTAXIS [None]
  - FATIGUE [None]
  - MUSCLE SPASMS [None]
  - NAUSEA [None]
  - PALPITATIONS [None]
  - URGE INCONTINENCE [None]
  - VISUAL IMPAIRMENT [None]
